FAERS Safety Report 6112636-0 (Version None)
Quarter: 2009Q1

REPORT INFORMATION
  Report Type: 
  Country: None (occurrence: None)
  Receive Date: 20090310
  Receipt Date: 20090225
  Transmission Date: 20090719
  Serious: Yes (Death, Other)
  Sender: FDA-Public Use
  Company Number: GXKR2009GB02429

PATIENT
  Sex: Male

DRUGS (4)
  1. WARFARIN SODIUM [Suspect]
     Indication: CEREBRAL DISORDER
  2. VACCINIUM MACROCARPON (VACCINIUM MACROCARPON) [Suspect]
     Dosage: APPR, 300-400 ML/DAY
  3. DIGOXIN [Concomitant]
  4. PHENYTOIN [Concomitant]

REACTIONS (11)
  - CIRCULATORY COLLAPSE [None]
  - CONTUSION [None]
  - DRUG INTERACTION [None]
  - GASTRIC ULCER [None]
  - GASTROINTESTINAL HAEMORRHAGE [None]
  - HYPOTHERMIA [None]
  - INTERNATIONAL NORMALISED RATIO INCREASED [None]
  - LOWER RESPIRATORY TRACT INFECTION [None]
  - PERICARDIAL HAEMORRHAGE [None]
  - RESUSCITATION [None]
  - SHOCK [None]
